FAERS Safety Report 7323576-3 (Version None)
Quarter: 2011Q1

REPORT INFORMATION
  Report Type: 
  Country: None (occurrence: None)
  Receive Date: 20110301
  Receipt Date: 20110222
  Transmission Date: 20110831
  Serious: Yes (Life-Threatening)
  Sender: FDA-Public Use
  Company Number: RU-ROCHE-761290

PATIENT
  Sex: Male
  Weight: 58 kg

DRUGS (2)
  1. RIBAVIRIN [Suspect]
     Dosage: FREQUENCY: DAILY; LAST DOSE PRIOR TO SAE: 21 FEBRUARY 2011
     Route: 048
     Dates: start: 20101126
  2. PEGINTERFERON ALFA-2A [Suspect]
     Dosage: LAST DOSE PRIOR TO SAE: 18 FEBRUARY 2011
     Route: 058
     Dates: start: 20101126

REACTIONS (1)
  - BRAIN NEOPLASM [None]
